FAERS Safety Report 7458468-2 (Version None)
Quarter: 2011Q2

REPORT INFORMATION
  Report Type: 
  Country: None (occurrence: None)
  Receive Date: 20110504
  Receipt Date: 20110502
  Transmission Date: 20111010
  Serious: Yes (Other)
  Sender: FDA-Public Use
  Company Number: D0071229A

PATIENT
  Age: 16 Year
  Sex: Female

DRUGS (1)
  1. MALARONE [Suspect]
     Route: 048

REACTIONS (3)
  - HALLUCINATION [None]
  - PANIC ATTACK [None]
  - ABDOMINAL PAIN [None]
